FAERS Safety Report 4489118-5 (Version None)
Quarter: 2004Q4

REPORT INFORMATION
  Report Type: 
  Country: None (occurrence: None)
  Receive Date: 20041026
  Receipt Date: 20041015
  Transmission Date: 20050328
  Serious: Yes (Death)
  Sender: FDA-Public Use
  Company Number: 04H-167-0277660-00

PATIENT
  Age: 2 Day

DRUGS (1)
  1. ATRACURIUM BESYLATE [Suspect]

REACTIONS (2)
  - CARDIO-RESPIRATORY ARREST [None]
  - OFF LABEL USE [None]
